FAERS Safety Report 7532752-6 (Version None)
Quarter: 2011Q2

REPORT INFORMATION
  Report Type: 
  Country: None (occurrence: None)
  Receive Date: 20110608
  Receipt Date: 20110524
  Transmission Date: 20111010
  Serious: Yes (Congenital Anomaly)
  Sender: FDA-Public Use
  Company Number: A0930622A

PATIENT
  Sex: Male

DRUGS (2)
  1. PAXIL [Suspect]
     Dosage: 40MG UNKNOWN
     Route: 064
  2. PAROXETINE HCL [Suspect]
     Dosage: 40MG UNKNOWN
     Route: 064

REACTIONS (5)
  - COARCTATION OF THE AORTA [None]
  - VENTRICULAR SEPTAL DEFECT [None]
  - DRUG EXPOSURE DURING PREGNANCY [None]
  - MITRAL VALVE STENOSIS [None]
  - BICUSPID AORTIC VALVE [None]
